FAERS Safety Report 18353217 (Version 1)
Quarter: 2020Q4

REPORT INFORMATION
  Report Type: Spontaneous
  Country: US (occurrence: US)
  Receive Date: 20201006
  Receipt Date: 20201006
  Transmission Date: 20210114
  Serious: No
  Sender: FDA-Public Use
  Company Number: US-ALLERGAN-2032570US

PATIENT
  Age: 54 Year
  Sex: Male
  Weight: 90 kg

DRUGS (14)
  1. ULTRAM [Concomitant]
     Active Substance: TRAMADOL HYDROCHLORIDE
  2. PEPCID [Concomitant]
     Active Substance: FAMOTIDINE
  3. PHOSPHATIDYL SERINE [Concomitant]
     Active Substance: PHOSPHATIDYL SERINE
  4. CINRYZE [Concomitant]
     Active Substance: HUMAN C1-ESTERASE INHIBITOR
  5. VERAPAMIL [Concomitant]
     Active Substance: VERAPAMIL HYDROCHLORIDE
  6. LINZESS [Suspect]
     Active Substance: LINACLOTIDE
     Indication: CONSTIPATION
     Dosage: 1 DF, QD
     Dates: start: 20191003, end: 20191004
  7. FIRAZYR [Concomitant]
     Active Substance: ICATIBANT ACETATE
  8. MAG OX [Concomitant]
     Active Substance: MAGNESIUM OXIDE
  9. LORAZEPAM. [Concomitant]
     Active Substance: LORAZEPAM
  10. TYLENOL [Concomitant]
     Active Substance: ACETAMINOPHEN
  11. OCTAGAM IMMUNE GLOBULIN (HUMAN) [Concomitant]
     Active Substance: HUMAN IMMUNOGLOBULIN G
  12. E.E.S. [Concomitant]
     Active Substance: ERYTHROMYCIN ETHYLSUCCINATE
  13. BENADRYL [Concomitant]
     Active Substance: DIPHENHYDRAMINE HYDROCHLORIDE
  14. ZOFRAN [Concomitant]
     Active Substance: ONDANSETRON HYDROCHLORIDE

REACTIONS (2)
  - Diarrhoea [Unknown]
  - Angioedema [Unknown]

NARRATIVE: CASE EVENT DATE: 20130630
